FAERS Safety Report 4469035-7 (Version None)
Quarter: 2004Q4

REPORT INFORMATION
  Report Type: 
  Country: None (occurrence: None)
  Receive Date: 20041001
  Receipt Date: 20040922
  Transmission Date: 20050328
  Serious: Yes (Hospitalization, Other)
  Sender: FDA-Public Use
  Company Number: 2004235125US

PATIENT
  Age: 34 Year
  Sex: Male
  Weight: 59 kg

DRUGS (3)
  1. SOLU-MEDROL [Suspect]
     Indication: MULTIPLE SCLEROSIS
     Dosage: 1 G, IV
     Route: 042
     Dates: start: 20020101
  2. VICODIN [Concomitant]
  3. OXYCONTIN [Concomitant]

REACTIONS (1)
  - ASEPTIC NECROSIS BONE [None]
